FAERS Safety Report 4730227-0 (Version None)
Quarter: 2005Q3

REPORT INFORMATION
  Report Type: 
  Country: None (occurrence: None)
  Receive Date: 20050728
  Receipt Date: 20050726
  Transmission Date: 20060218
  Serious: Yes (Life-Threatening, Hospitalization, Other)
  Sender: FDA-Public Use
  Company Number: 200510098BFR

PATIENT
  Age: 84 Year
  Sex: Female

DRUGS (9)
  1. IZILOX             (MOXIFLOXACIN HYDROCHLORIDE) [Suspect]
     Indication: RESPIRATORY TRACT INFECTION
     Dosage: 400 MG, TOTAL DAILY, ORAL
     Route: 048
     Dates: start: 20050111, end: 20050115
  2. ROCEPHIN [Suspect]
     Indication: RESPIRATORY TRACT INFECTION
     Dosage: INTRAVENOUS
     Route: 042
     Dates: start: 20041227
  3. COTRANCYL [Concomitant]
  4. NOOTROPYL [Concomitant]
  5. ELISOR [Concomitant]
  6. PRETERAX [Concomitant]
  7. ZELITREX [Concomitant]
  8. TOPALGIC [Concomitant]
  9. EUPRESSYL [Concomitant]

REACTIONS (7)
  - AGRANULOCYTOSIS [None]
  - APATHY [None]
  - CHOLELITHIASIS [None]
  - CHOLESTASIS [None]
  - CONDITION AGGRAVATED [None]
  - CYTOLYTIC HEPATITIS [None]
  - GENERAL PHYSICAL HEALTH DETERIORATION [None]
